FAERS Safety Report 9410906 (Version 1)
Quarter: 2013Q3

REPORT INFORMATION
  Report Type: Spontaneous
  Country: AU (occurrence: AU)
  Receive Date: 20130719
  Receipt Date: 20130719
  Transmission Date: 20140515
  Serious: Yes (Hospitalization)
  Sender: FDA-Public Use
  Company Number: AU-009507513-1307AUS009296

PATIENT
  Age: 22 Month
  Sex: Female

DRUGS (3)
  1. CLARATYNE [Suspect]
     Dosage: ?COUPLE
     Route: 048
     Dates: start: 20091110
  2. BENADRYL [Suspect]
     Dosage: ?COUPLE
     Dates: start: 20091110
  3. FEXOFENADINE HYDROCHLORIDE [Suspect]
     Dosage: ?COUPLE DOSE
     Dates: start: 20091110

REACTIONS (2)
  - Accidental overdose [Unknown]
  - Accidental exposure to product by child [Unknown]
